FAERS Safety Report 17687729 (Version 1)
Quarter: 2020Q2

REPORT INFORMATION
  Report Type: Spontaneous
  Country: US (occurrence: US)
  Receive Date: 20200417
  Receipt Date: 20200417
  Transmission Date: 20200714
  Serious: Yes (Hospitalization)
  Sender: FDA-Public Use
  Company Number: None

PATIENT
  Age: 86 Year
  Sex: Male
  Weight: 103 kg

DRUGS (2)
  1. WARFARIN (WARFARIN NA 2MG TAB) [Suspect]
     Active Substance: WARFARIN SODIUM
     Indication: DEEP VEIN THROMBOSIS
     Route: 048
     Dates: start: 19950427
  2. ASPIRIN (ASPIRIN 81MG TAB, EC) [Suspect]
     Active Substance: ASPIRIN
     Indication: CEREBROVASCULAR ACCIDENT PROPHYLAXIS
     Route: 048
     Dates: start: 20160613

REACTIONS (5)
  - Anaemia [None]
  - Hiatus hernia [None]
  - Therapy interrupted [None]
  - Anticoagulation drug level above therapeutic [None]
  - Melaena [None]

NARRATIVE: CASE EVENT DATE: 20191018
